FAERS Safety Report 17763236 (Version 1)
Quarter: 2020Q2

REPORT INFORMATION
  Report Type: Spontaneous
  Country: IN (occurrence: IN)
  Receive Date: 20200508
  Receipt Date: 20200508
  Transmission Date: 20200714
  Serious: Yes (Life-Threatening)
  Sender: FDA-Public Use
  Company Number: IN-BAXTER-2020BAX009505

PATIENT
  Age: 56 Year
  Sex: Female

DRUGS (1)
  1. DEXTRAN 40 INJECTION IP [Suspect]
     Active Substance: DEXTRAN 40
     Indication: PYREXIA
     Route: 041

REACTIONS (3)
  - Product contamination [Unknown]
  - Mycotic endophthalmitis [Recovering/Resolving]
  - Poor quality product administered [Unknown]
